FAERS Safety Report 8132506-6 (Version None)
Quarter: 2012Q1

REPORT INFORMATION
  Report Type: 
  Country: None (occurrence: None)
  Receive Date: 20120213
  Receipt Date: 20120201
  Transmission Date: 20120608
  Serious: Yes (Hospitalization, Other)
  Sender: FDA-Public Use
  Company Number: JP-BRISTOL-MYERS SQUIBB COMPANY-16363574

PATIENT
  Age: 75 Year
  Sex: Male

DRUGS (9)
  1. ALLOPURINOL [Concomitant]
  2. BASEN [Concomitant]
     Route: 048
  3. CRESTOR [Concomitant]
  4. URSO 250 [Concomitant]
  5. METFORMIN HCL [Suspect]
     Indication: DIABETES MELLITUS
     Route: 048
     Dates: start: 20111121, end: 20111215
  6. ACTOS [Concomitant]
     Dates: start: 20070529, end: 20070620
  7. CARVEDILOL [Concomitant]
  8. GLIMICRON [Concomitant]
     Route: 048
  9. ASPIRIN [Concomitant]

REACTIONS (3)
  - LIVER DISORDER [None]
  - CHOLANGITIS [None]
  - CHOLECYSTITIS [None]
